FAERS Safety Report 4766060-3 (Version None)
Quarter: 2005Q3

REPORT INFORMATION
  Report Type: 
  Country: None (occurrence: None)
  Receive Date: 20050912
  Receipt Date: 20050901
  Transmission Date: 20060218
  Serious: Yes (Other)
  Sender: FDA-Public Use
  Company Number: PHEH2005US09784

PATIENT
  Age: 60 Year
  Sex: Male

DRUGS (1)
  1. ZOMETA [Suspect]
     Indication: LYMPHOMA
     Dosage: UNK QMO
     Route: 042
     Dates: start: 20050301

REACTIONS (5)
  - CATHETERISATION CARDIAC [None]
  - DEVICE FAILURE [None]
  - DYSPNOEA [None]
  - INFUSION SITE REACTION [None]
  - PARAESTHESIA [None]
